FAERS Safety Report 5123960-2 (Version None)
Quarter: 2006Q4

REPORT INFORMATION
  Report Type: 
  Country: None (occurrence: None)
  Receive Date: 20061010
  Receipt Date: 20061005
  Transmission Date: 20070319
  Serious: Yes (Life-Threatening, Hospitalization, Other)
  Sender: FDA-Public Use
  Company Number: AT-BAYER-200614442GDS

PATIENT
  Age: 63 Year
  Sex: Male
  Weight: 70 kg

DRUGS (2)
  1. NEXAVAR [Suspect]
     Indication: METASTATIC RENAL CELL CARCINOMA
     Dosage: TOTAL DAILY DOSE: 800 MG  UNIT DOSE: 200 MG
     Route: 048
     Dates: start: 20060629, end: 20060712
  2. FORTECORTIN [DEXAMETHASONE] [Concomitant]
     Indication: BRAIN OEDEMA
     Dosage: TOTAL DAILY DOSE: 24 MG
     Route: 048
     Dates: start: 20060629, end: 20060712

REACTIONS (6)
  - DIVERTICULITIS [None]
  - DUODENAL PERFORATION [None]
  - FAILURE TO ANASTOMOSE [None]
  - IMPAIRED HEALING [None]
  - PANCYTOPENIA [None]
  - POST PROCEDURAL COMPLICATION [None]
